FAERS Safety Report 9399550 (Version 1)
Quarter: 2013Q3

REPORT INFORMATION
  Report Type: Spontaneous
  Country: AT (occurrence: AT)
  Receive Date: 20130710
  Receipt Date: 20130710
  Transmission Date: 20140515
  Serious: Yes (Hospitalization)
  Sender: FDA-Public Use
  Company Number: FK201302406

PATIENT
  Age: 27 Year
  Sex: Female

DRUGS (4)
  1. DOXORUBICIN [Suspect]
     Indication: EWING^S SARCOMA
     Dosage: DAYS 1-3 OF DRUG THERAPY.
  2. ETOPOSIDE [Suspect]
     Indication: EWING^S SARCOMA
  3. IFOSFAMIDE [Suspect]
     Indication: EWING^S SARCOMA
  4. VINCRISTINE [Suspect]
     Indication: EWING^S SARCOMA

REACTIONS (5)
  - Oligohydramnios [None]
  - Abdominal pain lower [None]
  - Abortion [None]
  - Foetal death [None]
  - Exposure during pregnancy [None]
